FAERS Safety Report 10146595 (Version 1)
Quarter: 2014Q2

REPORT INFORMATION
  Report Type: Spontaneous
  Country: US (occurrence: None)
  Receive Date: 20140430
  Receipt Date: 20140430
  Transmission Date: 20141212
  Serious: Yes (Hospitalization)
  Sender: FDA-Public Use
  Company Number: None

PATIENT
  Age: 52 Year
  Sex: Female

DRUGS (17)
  1. AMITRIPTYLLINE [Suspect]
     Indication: DEPRESSION
     Route: 048
     Dates: end: 20140130
  2. PROPAFENONE [Suspect]
  3. MEXILETINE [Concomitant]
  4. ASA [Concomitant]
  5. CARVEDILOL [Concomitant]
  6. DIGOXIN [Concomitant]
  7. DOCUSATE [Concomitant]
  8. DULOXETINE [Concomitant]
  9. FERROUS SULFATE [Concomitant]
  10. FUROSEMIDE [Concomitant]
  11. LOSARTAN [Concomitant]
  12. MECLIZINE [Concomitant]
  13. OMEPRAZOLE [Concomitant]
  14. PERCOCET [Concomitant]
  15. RIVAROXABAN [Concomitant]
  16. SENNA [Concomitant]
  17. SIMVASTATIN [Concomitant]

REACTIONS (3)
  - Torsade de pointes [None]
  - Blood magnesium decreased [None]
  - Electrocardiogram QT prolonged [None]
